FAERS Safety Report 5261004-2 (Version None)
Quarter: 2007Q1

REPORT INFORMATION
  Report Type: 
  Country: None (occurrence: None)
  Receive Date: 20070306
  Receipt Date: 20070221
  Transmission Date: 20070707
  Serious: Yes (Other)
  Sender: FDA-Public Use
  Company Number: 2007RR-05952

PATIENT
  Age: 80 Year
  Sex: Female

DRUGS (5)
  1. IBUPROFEN [Suspect]
     Indication: ARTHRALGIA
     Dosage: 400 MG, TID,
  2. LEVOBUNOLOL HYDROCHLORIDE [Concomitant]
  3. LATANOPROST [Concomitant]
  4. DORZOLAMIDE HCL [Concomitant]
  5. METHOTREXATE [Concomitant]

REACTIONS (2)
  - ACANTHOSIS [None]
  - ACUTE GENERALISED EXANTHEMATOUS PUSTULOSIS [None]
